FAERS Safety Report 5927460-9 (Version None)
Quarter: 2008Q4

REPORT INFORMATION
  Report Type: 
  Country: None (occurrence: None)
  Receive Date: 20081022
  Receipt Date: 20081022
  Transmission Date: 20090506
  Serious: Yes (Other)
  Sender: FDA-Public Use
  Company Number: None

PATIENT
  Sex: Female
  Weight: 60.782 kg

DRUGS (2)
  1. LOVAZA [Suspect]
     Indication: BLOOD CHOLESTEROL INCREASED
     Dosage: 2 CAPSULES 2 TIMES A DAY MOUTH
     Route: 048
     Dates: start: 20071208, end: 20080229
  2. SIMCOR [Suspect]
     Indication: BLOOD CHOLESTEROL INCREASED
     Dosage: 1 TABLET 1 TAB DAILY MOUTH
     Route: 048
     Dates: start: 20080723, end: 20080818

REACTIONS (6)
  - BACK PAIN [None]
  - DEPRESSION [None]
  - HEADACHE [None]
  - HEART RATE IRREGULAR [None]
  - PHOTOSENSITIVITY REACTION [None]
  - URTICARIA [None]
